FAERS Safety Report 19322832 (Version 1)
Quarter: 2021Q2

REPORT INFORMATION
  Report Type: Spontaneous
  Country: TH (occurrence: TH)
  Receive Date: 20210528
  Receipt Date: 20210528
  Transmission Date: 20210717
  Serious: Yes (Death)
  Sender: FDA-Public Use
  Company Number: TH-BAXTER-2021BAX012562

PATIENT
  Sex: Female

DRUGS (1)
  1. DIANEAL PD?2 WITH DEXTROSE [Suspect]
     Active Substance: CALCIUM CHLORIDE\DEXTROSE\MAGNESIUM CHLORIDE\SODIUM CHLORIDE\SODIUM LACTATE
     Indication: PERITONEAL DIALYSIS
     Dosage: 2 BAGS
     Route: 033
     Dates: start: 20181126, end: 20210520

REACTIONS (1)
  - Cardiac failure [Fatal]
